FAERS Safety Report 6282529-7 (Version None)
Quarter: 2009Q3

REPORT INFORMATION
  Report Type: 
  Country: None (occurrence: None)
  Receive Date: 20090724
  Receipt Date: 20090721
  Transmission Date: 20100115
  Serious: Yes (Death)
  Sender: FDA-Public Use
  Company Number: US-CELGENEUS-163-21880-09071581

PATIENT
  Sex: Male

DRUGS (2)
  1. REVLIMID [Suspect]
     Indication: MULTIPLE MYELOMA
     Route: 048
     Dates: start: 20090303, end: 20090525
  2. REVLIMID [Suspect]
     Route: 048
     Dates: start: 20080130, end: 20090301

REACTIONS (1)
  - MULTIPLE MYELOMA [None]
